FAERS Safety Report 10200808 (Version 2)
Quarter: 2014Q2

REPORT INFORMATION
  Report Type: Spontaneous
  Country: US (occurrence: US)
  Receive Date: 20140528
  Receipt Date: 20140618
  Transmission Date: 20141212
  Serious: Yes (Death, Other)
  Sender: FDA-Public Use
  Company Number: US-UCBSA-122128

PATIENT
  Age: 60 Year
  Sex: Female
  Weight: 97.72 kg

DRUGS (4)
  1. VIMPAT [Suspect]
     Indication: CONVULSION PROPHYLAXIS
     Dosage: DOSE UNKNOWN; TWICE DAILY SINCE MORE THAN 2 YEARS
     Route: 048
     Dates: end: 20140408
  2. LYRICA [Concomitant]
  3. OXCARBAZEPINE [Concomitant]
  4. LAMOTRIGINE [Concomitant]

REACTIONS (10)
  - Myocardial infarction [Fatal]
  - Convulsion [Fatal]
  - Hypertension [Fatal]
  - Ankle fracture [Recovered/Resolved]
  - Generalised tonic-clonic seizure [Unknown]
  - Partial seizures with secondary generalisation [Unknown]
  - Back pain [Unknown]
  - Musculoskeletal pain [Unknown]
  - Somnolence [Unknown]
  - Gait disturbance [Unknown]
